FAERS Safety Report 5832482-2 (Version None)
Quarter: 2008Q3

REPORT INFORMATION
  Report Type: 
  Country: None (occurrence: None)
  Receive Date: 20080731
  Receipt Date: 20080716
  Transmission Date: 20090109
  Serious: Yes (Death, Hospitalization)
  Sender: FDA-Public Use
  Company Number: 2008001555

PATIENT
  Age: 63 Year
  Sex: Female

DRUGS (9)
  1. ERLOTINIB (ERLOTINIB) (TABLET) (ERLOTINIB) [Suspect]
     Indication: LUNG ADENOCARCINOMA
     Dosage: 150 MG, QD, ORAL
     Route: 048
     Dates: start: 20080421, end: 20080617
  2. URSO 250 [Concomitant]
  3. FAMOTIDINE [Concomitant]
  4. PREDONINE (PREDNISOLONE) [Concomitant]
  5. DIOVAN [Concomitant]
  6. AMLODIPIN (AMLODIPINE BESILATE) [Concomitant]
  7. PURSENNID (SENNA LEAF) [Concomitant]
  8. OXYCONTIN [Concomitant]
  9. NEOPHAGEN (GLYCYRRHIZINATE POTASSIUM) [Concomitant]

REACTIONS (2)
  - PNEUMOTHORAX [None]
  - RESPIRATORY FAILURE [None]
